FAERS Safety Report 16761185 (Version 1)
Quarter: 2019Q3

REPORT INFORMATION
  Report Type: Spontaneous
  Country: US (occurrence: US)
  Receive Date: 20190830
  Receipt Date: 20190830
  Transmission Date: 20191005
  Serious: No
  Sender: FDA-Public Use
  Company Number: US-ANIPHARMA-2019-US-004878

PATIENT
  Sex: Female

DRUGS (4)
  1. ANASTROZOLE. [Suspect]
     Active Substance: ANASTROZOLE
     Indication: PRODUCT USED FOR UNKNOWN INDICATION
     Dates: start: 2013
  2. ATENOLOL. [Concomitant]
     Active Substance: ATENOLOL
     Dosage: AS NEEDED
     Dates: start: 20140314
  3. LEVOTHYROXINE SODIUM. [Concomitant]
     Active Substance: LEVOTHYROXINE SODIUM
     Dates: start: 19890314
  4. FASLODEX [Suspect]
     Active Substance: FULVESTRANT
     Dates: start: 201302

REACTIONS (1)
  - Tumour marker increased [Unknown]
